FAERS Safety Report 17403036 (Version 1)
Quarter: 2020Q1

REPORT INFORMATION
  Report Type: Spontaneous
  Country: ES (occurrence: ES)
  Receive Date: 20200211
  Receipt Date: 20200211
  Transmission Date: 20200409
  Serious: Yes (Other)
  Sender: FDA-Public Use
  Company Number: ES-TEVA-2020-ES-1183583

PATIENT
  Age: 69 Year
  Sex: Male

DRUGS (3)
  1. YURELAX 10 MG CAPSULAS DURAS , 30 C?PSULAS [Concomitant]
     Active Substance: CYCLOBENZAPRINE HYDROCHLORIDE
     Indication: MUSCLE CONTRACTURE
     Route: 048
     Dates: start: 20190629
  2. VALSARTAN (7423A) [Suspect]
     Active Substance: VALSARTAN
     Indication: HYPERTENSION
     Route: 048
     Dates: start: 2019
  3. IBUPROFENO KERN PHARMA 600 MG COMPRIMIDOS RECUBIERTOS CON PELICULA EFG [Suspect]
     Active Substance: IBUPROFEN
     Indication: MUSCLE CONTRACTURE
     Dosage: 600 MG
     Route: 048
     Dates: start: 20190629, end: 20190702

REACTIONS (1)
  - Acute kidney injury [Recovered/Resolved]

NARRATIVE: CASE EVENT DATE: 20190702
